FAERS Safety Report 4457163-1 (Version None)
Quarter: 2004Q3

REPORT INFORMATION
  Report Type: 
  Country: None (occurrence: None)
  Receive Date: 20040821
  Receipt Date: 20040910
  Transmission Date: 20050211
  Serious: Yes (Hospitalization)
  Sender: FDA-Public Use
  Company Number: 208981

PATIENT
  Age: 84 Year
  Sex: Female
  Weight: 67.6 kg

DRUGS (2)
  1. AVASTIN [Suspect]
     Indication: COLON CANCER
     Dosage: 340 MG,Q2W, INTRAVENOUS
     Route: 042
     Dates: start: 20040819
  2. GEMZAR [Concomitant]

REACTIONS (1)
  - PULMONARY EMBOLISM [None]
